FAERS Safety Report 15527304 (Version 1)
Quarter: 2018Q4

REPORT INFORMATION
  Report Type: Spontaneous
  Country: US (occurrence: US)
  Receive Date: 20181018
  Receipt Date: 20181018
  Transmission Date: 20190205
  Serious: No
  Sender: FDA-Public Use
  Company Number: US-AMGEN-USASP2018096312

PATIENT
  Age: 55 Year
  Sex: Male
  Weight: 82.86 kg

DRUGS (2)
  1. REPATHA [Suspect]
     Active Substance: EVOLOCUMAB
     Dosage: UNK
     Route: 065
     Dates: end: 20180404
  2. REPATHA [Suspect]
     Active Substance: EVOLOCUMAB
     Indication: BLOOD CHOLESTEROL INCREASED
     Dosage: UNK
     Route: 065
     Dates: start: 20180216

REACTIONS (4)
  - Malaise [Unknown]
  - Feeling abnormal [Unknown]
  - Arthralgia [Unknown]
  - Muscular weakness [Unknown]

NARRATIVE: CASE EVENT DATE: 2018
